FAERS Safety Report 8430584-8 (Version None)
Quarter: 2012Q2

REPORT INFORMATION
  Report Type: 
  Country: None (occurrence: None)
  Receive Date: 20120612
  Receipt Date: 20120606
  Transmission Date: 20120825
  Serious: Yes (Other)
  Sender: FDA-Public Use
  Company Number: IT-VIIV HEALTHCARE LIMITED-B0807340A

PATIENT
  Age: 35 Year
  Sex: Female

DRUGS (3)
  1. MARAVIROC [Suspect]
     Indication: HIV INFECTION
     Route: 065
  2. DARUNAVIR HYDRATE [Suspect]
     Indication: HIV INFECTION
     Route: 065
  3. NORVIR [Suspect]
     Indication: HIV INFECTION
     Route: 065

REACTIONS (3)
  - URINARY TRACT INFECTION [None]
  - OVARIAN CYST [None]
  - CD4 LYMPHOCYTES DECREASED [None]
